FAERS Safety Report 5376875-9 (Version None)
Quarter: 2007Q3

REPORT INFORMATION
  Report Type: 
  Country: None (occurrence: None)
  Receive Date: 20070703
  Receipt Date: 20070626
  Transmission Date: 20080115
  Serious: Yes (Hospitalization)
  Sender: FDA-Public Use
  Company Number: FR-ELI_LILLY_AND_COMPANY-FR200706005621

PATIENT
  Age: 62 Year
  Sex: Male

DRUGS (5)
  1. GEMZAR [Suspect]
     Indication: NON-SMALL CELL LUNG CANCER
     Dosage: 1250 MG/M2, OTHER
     Route: 042
     Dates: start: 20070228, end: 20070330
  2. CISPLATIN [Concomitant]
     Indication: NON-SMALL CELL LUNG CANCER
     Dosage: 80 MG/M2, OTHER
     Route: 042
     Dates: start: 20070228
  3. INSULIN MIXTARD ^NOVO NORDISK^ [Concomitant]
     Indication: TYPE 1 DIABETES MELLITUS
     Dosage: UNK, UNKNOWN
     Route: 065
  4. ATACAND [Concomitant]
     Dosage: UNK, UNKNOWN
     Route: 065
  5. PRAVASTATIN [Concomitant]
     Dosage: UNK, UNKNOWN
     Route: 065

REACTIONS (2)
  - BLOOD CREATININE INCREASED [None]
  - HAEMOLYTIC ANAEMIA [None]
